FAERS Safety Report 21376570 (Version 1)
Quarter: 2022Q3

REPORT INFORMATION
  Report Type: Spontaneous
  Country: US (occurrence: None)
  Receive Date: 20220924
  Receipt Date: 20220924
  Transmission Date: 20221026
  Serious: No
  Sender: FDA-Public Use
  Company Number: None

PATIENT
  Age: 56 Year
  Sex: Female
  Weight: 72.6 kg

DRUGS (3)
  1. DARATUMUMAB\HYALURONIDASE-FIHJ [Suspect]
     Active Substance: DARATUMUMAB\HYALURONIDASE-FIHJ
     Dates: end: 20220708
  2. DEXAMETHASONE [Suspect]
     Active Substance: DEXAMETHASONE
     Dates: end: 20220708
  3. LENALIDOMIDE [Suspect]
     Active Substance: LENALIDOMIDE
     Dates: end: 20220713

REACTIONS (1)
  - Neutrophil count decreased [None]

NARRATIVE: CASE EVENT DATE: 20220721
